APPROVED DRUG PRODUCT: AMPICILLIN SODIUM
Active Ingredient: AMPICILLIN SODIUM
Strength: EQ 250MG BASE/VIAL
Dosage Form/Route: INJECTABLE;INJECTION
Application: A062816 | Product #002
Applicant: WATSON LABORATORIES INC
Approved: Oct 24, 1988 | RLD: No | RS: No | Type: DISCN